FAERS Safety Report 25622314 (Version 1)
Quarter: 2025Q3

REPORT INFORMATION
  Report Type: Spontaneous
  Country: CN (occurrence: CN)
  Receive Date: 20250730
  Receipt Date: 20250730
  Transmission Date: 20251020
  Serious: Yes (Other)
  Sender: BEIGENE
  Company Number: CN-BEIGENE-BGN-2025-012192

PATIENT
  Age: 44 Year

DRUGS (16)
  1. TISLELIZUMAB [Suspect]
     Active Substance: TISLELIZUMAB
     Indication: Nasopharyngeal cancer
  2. TISLELIZUMAB [Suspect]
     Active Substance: TISLELIZUMAB
     Route: 041
  3. TISLELIZUMAB [Suspect]
     Active Substance: TISLELIZUMAB
     Route: 041
  4. TISLELIZUMAB [Suspect]
     Active Substance: TISLELIZUMAB
  5. DOCETAXEL [Suspect]
     Active Substance: DOCETAXEL
     Indication: Nasopharyngeal cancer
  6. DOCETAXEL [Suspect]
     Active Substance: DOCETAXEL
     Route: 041
  7. DOCETAXEL [Suspect]
     Active Substance: DOCETAXEL
     Route: 041
  8. DOCETAXEL [Suspect]
     Active Substance: DOCETAXEL
  9. FLUOROURACIL [Suspect]
     Active Substance: FLUOROURACIL
     Indication: Nasopharyngeal cancer
  10. FLUOROURACIL [Suspect]
     Active Substance: FLUOROURACIL
     Route: 041
  11. FLUOROURACIL [Suspect]
     Active Substance: FLUOROURACIL
     Route: 041
  12. FLUOROURACIL [Suspect]
     Active Substance: FLUOROURACIL
  13. NEDAPLATIN [Suspect]
     Active Substance: NEDAPLATIN
     Indication: Nasopharyngeal cancer
     Dosage: 58.8 MILLIGRAM, QD
  14. NEDAPLATIN [Suspect]
     Active Substance: NEDAPLATIN
     Dosage: 58.8 MILLIGRAM, QD
     Route: 041
  15. NEDAPLATIN [Suspect]
     Active Substance: NEDAPLATIN
     Dosage: 58.8 MILLIGRAM, QD
     Route: 041
  16. NEDAPLATIN [Suspect]
     Active Substance: NEDAPLATIN
     Dosage: 58.8 MILLIGRAM, QD

REACTIONS (1)
  - Myelosuppression [Recovering/Resolving]
